FAERS Safety Report 5944557-8 (Version None)
Quarter: 2008Q4

REPORT INFORMATION
  Report Type: 
  Country: None (occurrence: None)
  Receive Date: 20081107
  Receipt Date: 20081103
  Transmission Date: 20090506
  Serious: Yes (Death, Hospitalization)
  Sender: FDA-Public Use
  Company Number: NZ-NOVOPROD-280849

PATIENT
  Sex: Female

DRUGS (2)
  1. NOVORAPID PENFILL [Suspect]
     Indication: TYPE 2 DIABETES MELLITUS
     Dates: end: 20080101
  2. PREDNISONE TAB [Concomitant]

REACTIONS (1)
  - PNEUMONIA [None]
